FAERS Safety Report 23586461 (Version 1)
Quarter: 2024Q1

REPORT INFORMATION
  Report Type: Spontaneous
  Country: GB (occurrence: GB)
  Receive Date: 20240301
  Receipt Date: 20240301
  Transmission Date: 20240409
  Serious: Yes (Other)
  Sender: FDA-Public Use
  Company Number: None

PATIENT
  Age: 50 Year
  Sex: Female
  Weight: 70 kg

DRUGS (16)
  1. NAPROXEN [Suspect]
     Active Substance: NAPROXEN
     Dosage: TIME INTERVAL: AS NECESSARY: 500MG. ONE TWICE A DAY AS REQUIRED.
     Route: 065
     Dates: start: 20230807
  2. BECLOMETHASONE\FORMOTEROL [Concomitant]
     Active Substance: BECLOMETHASONE\FORMOTEROL
     Dates: start: 20230807
  3. DEPO-PROVERA [Concomitant]
     Active Substance: MEDROXYPROGESTERONE ACETATE
     Dosage: USE AS DIRECTED
     Dates: start: 20240118
  4. ALBUTEROL [Concomitant]
     Active Substance: ALBUTEROL
     Dosage: TIME INTERVAL: AS NECESSARY: 2 SPRAYS PRN
     Dates: start: 20230807
  5. POLYETHYLENE GLYCOL 3350\POTASSIUM CHLORIDE\SODIUM BICARBONATE\SODIUM [Concomitant]
     Active Substance: POLYETHYLENE GLYCOL 3350\POTASSIUM CHLORIDE\SODIUM BICARBONATE\SODIUM CHLORIDE
     Dosage: USE AS DIRECTED
     Dates: start: 20230807
  6. LOSARTAN [Concomitant]
     Active Substance: LOSARTAN
     Dates: start: 20240209
  7. COCODAMOL [Concomitant]
     Active Substance: ACETAMINOPHEN\CODEINE PHOSPHATE
     Dosage: TIME INTERVAL: AS NECESSARY: TAKE ONE OR TWO 4 TIMES/DAY AS REQUIRED
     Dates: start: 20240202
  8. LISINOPRIL [Concomitant]
     Active Substance: LISINOPRIL
     Dosage: DURATION: 155 DAYS
     Dates: start: 20230807, end: 20240109
  9. LANSOPRAZOLE [Concomitant]
     Active Substance: LANSOPRAZOLE
     Dosage: WHILE TAKING NAPROXEN
     Dates: start: 20230807
  10. CITALOPRAM [Concomitant]
     Active Substance: CITALOPRAM HYDROBROMIDE
     Dates: start: 20230807
  11. CHOLECALCIFEROL [Concomitant]
     Active Substance: CHOLECALCIFEROL
     Dates: start: 20230807
  12. PROCHLORPERAZINE [Concomitant]
     Active Substance: PROCHLORPERAZINE
     Dosage: TIME INTERVAL: AS NECESSARY: ONE THREE TIMES A DAY AS REQUIRED
     Dates: start: 20240209
  13. CEPHALEXIN [Concomitant]
     Active Substance: CEPHALEXIN
     Dosage: 2 IMMEDIATELY AS DIRECTED
     Dates: start: 20230807
  14. CLARITHROMYCIN [Concomitant]
     Active Substance: CLARITHROMYCIN
     Dates: start: 20230807
  15. SODIUM CHLORIDE [Concomitant]
     Active Substance: SODIUM CHLORIDE
     Dosage: USE AS DIRECTED
     Dates: start: 20230807
  16. DESLORATADINE [Concomitant]
     Active Substance: DESLORATADINE
     Dates: start: 20230807

REACTIONS (2)
  - Pharyngeal swelling [Recovering/Resolving]
  - Lip swelling [Recovering/Resolving]
